FAERS Safety Report 8555243 (Version 2)
Quarter: 2012Q4

REPORT INFORMATION
  Report Type: 
  Country: FR (occurrence: FR)
  Receive Date: 20120510
  Receipt Date: 20120904
  Transmission Date: 20130627
  Serious: Yes (Hospitalization)
  Sender: FDA-Public Use
  Company Number: FR-COVIDIEN/TYCO HEALTHCARE/MALLINCKRODT-T201201681

PATIENT
  Age: 45 Year
  Sex: Female

DRUGS (1)
  1. IOVERSOL [Suspect]
     Indication: COMPUTERISED TOMOGRAM
     Dosage: 60 ml, single
     Route: 042
     Dates: start: 20120425, end: 20120425

REACTIONS (4)
  - Laryngeal oedema [Recovered/Resolved]
  - Dysphonia [Recovered/Resolved]
  - Lip swelling [Recovered/Resolved]
  - Urticaria [Recovered/Resolved]
